FAERS Safety Report 6321715-4 (Version None)
Quarter: 2009Q3

REPORT INFORMATION
  Report Type: 
  Country: None (occurrence: None)
  Receive Date: 20090821
  Receipt Date: 20090821
  Transmission Date: 20100115
  Serious: No
  Sender: FDA-Public Use
  Company Number: None

PATIENT
  Sex: Female
  Weight: 74.8435 kg

DRUGS (1)
  1. BENZTROPINE MESYLATE [Suspect]
     Indication: TREMOR
     Dosage: 1 MG TAB TWICE A DAY ORAL 047
     Route: 048
     Dates: start: 20090608

REACTIONS (3)
  - MENTAL DISORDER [None]
  - MOOD ALTERED [None]
  - SPEECH DISORDER [None]
